FAERS Safety Report 8790503 (Version 1)
Quarter: 2012Q4

REPORT INFORMATION
  Report Type: Spontaneous
  Country: US (occurrence: None)
  Receive Date: 20120912
  Receipt Date: 20120912
  Transmission Date: 20130627
  Serious: Yes (Disabling)
  Sender: FDA-Public Use
  Company Number: None

PATIENT
  Age: 30 Year
  Sex: Male
  Weight: 80 kg

DRUGS (1)
  1. OTRIVIN [Suspect]
     Indication: NASAL DECONGESTION THERAPY
     Dosage: 1-3 drops  2 nasal
     Route: 045
     Dates: start: 20120909, end: 20120910

REACTIONS (2)
  - Ear discomfort [None]
  - Lacrimation increased [None]
